FAERS Safety Report 6369271-9 (Version None)
Quarter: 2009Q3

REPORT INFORMATION
  Report Type: 
  Country: None (occurrence: None)
  Receive Date: 20090916
  Receipt Date: 20090908
  Transmission Date: 20100115
  Serious: Yes (Hospitalization, Other)
  Sender: FDA-Public Use
  Company Number: ADR20942009

PATIENT
  Sex: Male

DRUGS (1)
  1. RISPERIDONE [Suspect]

REACTIONS (2)
  - AGGRESSION [None]
  - NEUROLEPTIC MALIGNANT SYNDROME [None]
